FAERS Safety Report 15859517 (Version 1)
Quarter: 2019Q1

REPORT INFORMATION
  Report Type: Spontaneous
  Country: CH (occurrence: CH)
  Receive Date: 20190123
  Receipt Date: 20190123
  Transmission Date: 20190417
  Serious: Yes (Other)
  Sender: FDA-Public Use
  Company Number: CH-ASTRAZENECA-2018SE86318

PATIENT
  Age: 627 Month
  Sex: Male

DRUGS (5)
  1. FASENRA [Suspect]
     Active Substance: BENRALIZUMAB
     Indication: ASTHMA
     Route: 058
     Dates: start: 20180622
  2. OCS [Concomitant]
     Route: 048
     Dates: start: 2019
  3. PULMICORT TURBUHALER [Concomitant]
     Active Substance: BUDESONIDE
  4. BRICANYL [Concomitant]
     Active Substance: TERBUTALINE SULFATE
  5. NASONEX [Concomitant]
     Active Substance: MOMETASONE FUROATE

REACTIONS (8)
  - Dyspepsia [Unknown]
  - Sinusitis [Unknown]
  - Affective disorder [Unknown]
  - Fatigue [Unknown]
  - Abdominal pain upper [Recovered/Resolved]
  - Osteoporosis [Unknown]
  - Suicide attempt [Unknown]
  - Eosinophilic pneumonia chronic [Unknown]

NARRATIVE: CASE EVENT DATE: 201807
